FAERS Safety Report 6288112-1 (Version None)
Quarter: 2009Q3

REPORT INFORMATION
  Report Type: 
  Country: None (occurrence: None)
  Receive Date: 20090729
  Receipt Date: 20081126
  Transmission Date: 20100115
  Serious: No
  Sender: FDA-Public Use
  Company Number: A0758556A

PATIENT
  Sex: Female

DRUGS (7)
  1. RANITIDINE [Suspect]
     Dosage: 300MG AT NIGHT
     Route: 048
     Dates: start: 20081001
  2. REQUIP [Suspect]
     Indication: RESTLESS LEGS SYNDROME
     Route: 048
  3. REQUIP XL [Suspect]
     Indication: RESTLESS LEGS SYNDROME
     Dosage: 4MG PER DAY
     Route: 048
     Dates: start: 20081114
  4. ACIPHEX [Concomitant]
  5. ZANTAC [Concomitant]
  6. CARAFATE [Concomitant]
  7. ALLEGRA [Concomitant]

REACTIONS (2)
  - DRUG INEFFECTIVE [None]
  - NAUSEA [None]
